FAERS Safety Report 9618135 (Version 1)
Quarter: 2013Q4

REPORT INFORMATION
  Report Type: Spontaneous
  Country: US (occurrence: SE)
  Receive Date: 20131014
  Receipt Date: 20131014
  Transmission Date: 20140711
  Serious: Yes (Hospitalization, Other)
  Sender: FDA-Public Use
  Company Number: SE-PFIZER INC-2013291298

PATIENT
  Age: 32 Year
  Sex: Male

DRUGS (2)
  1. EPANUTIN [Suspect]
     Indication: PROPHYLAXIS
     Dosage: 40 MG, DAILY
  2. EPANUTIN [Suspect]
     Dosage: 100 MG, DAILY

REACTIONS (8)
  - Toxicity to various agents [Unknown]
  - Anticonvulsant drug level above therapeutic [Unknown]
  - Cerebellar atrophy [Unknown]
  - Cerebellar ataxia [Unknown]
  - Dysarthria [Unknown]
  - Balance disorder [Unknown]
  - Somnolence [Unknown]
  - Nystagmus [Unknown]
